FAERS Safety Report 13435584 (Version 1)
Quarter: 2017Q2

REPORT INFORMATION
  Report Type: Spontaneous
  Country: US (occurrence: US)
  Receive Date: 20170413
  Receipt Date: 20170413
  Transmission Date: 20170830
  Serious: No
  Sender: FDA-Public Use
  Company Number: US-PFIZER INC-2016552490

PATIENT
  Age: 64 Year
  Sex: Male

DRUGS (20)
  1. FINASTERIDE. [Concomitant]
     Active Substance: FINASTERIDE
     Indication: PROSTATIC DISORDER
     Dosage: 5 MG, 1X/DAY
  2. CARBAMAZEPINE. [Concomitant]
     Active Substance: CARBAMAZEPINE
     Indication: NEUROPATHY PERIPHERAL
     Dosage: 400 MG, 2X/DAY
  3. FLUTICASONE PROPIONATE. [Concomitant]
     Active Substance: FLUTICASONE PROPIONATE
     Dosage: UNK (2 SQUIRTS PER NOSTRIL BEFORE BED)
     Route: 045
  4. HYDROXYCHLOROQUINE [Concomitant]
     Active Substance: HYDROXYCHLOROQUINE
     Indication: RHEUMATOID ARTHRITIS
     Dosage: 200 MG, UNK
  5. BABY ASPIRIN [Concomitant]
     Active Substance: ASPIRIN
     Indication: ANTICOAGULANT THERAPY
     Dosage: 81 MG, UNK
  6. ZOLPIDEM [Concomitant]
     Active Substance: ZOLPIDEM\ZOLPIDEM TARTRATE
     Dosage: 10 MG, 1X/DAY (AT BEDTIME)
  7. TAMSULOSIN [Concomitant]
     Active Substance: TAMSULOSIN
     Indication: PROSTATIC DISORDER
     Dosage: 0.4 MG, 2X/DAY
     Route: 048
  8. TRAMADOL. [Concomitant]
     Active Substance: TRAMADOL
     Indication: PAIN
     Dosage: 100 MG, 3X/DAY
  9. VICTOZA [Concomitant]
     Active Substance: LIRAGLUTIDE
     Dosage: UNK
  10. RANITIDINE. [Concomitant]
     Active Substance: RANITIDINE
     Indication: DYSPEPSIA
     Dosage: 40 MG, 1X/DAY (1 TAB BEDTIME )
  11. METFORMIN [Concomitant]
     Active Substance: METFORMIN HYDROCHLORIDE
     Indication: BLOOD GLUCOSE ABNORMAL
     Dosage: 500 MG, 2X/DAY (LUNCH AND DINNER)
  12. LOVASTATIN. [Concomitant]
     Active Substance: LOVASTATIN
     Indication: BLOOD CHOLESTEROL INCREASED
     Dosage: 40 MG, 1X/DAY
     Route: 048
  13. HYDROXYCHLOROQUINE [Concomitant]
     Active Substance: HYDROXYCHLOROQUINE
     Indication: NEUROPATHY PERIPHERAL
  14. PHENDIMETRAZINE. [Concomitant]
     Active Substance: PHENDIMETRAZINE TARTRATE
     Indication: CARDIOVASCULAR SYMPTOM
     Dosage: 105 MG, 1X/DAY
  15. GABAPENTIN. [Concomitant]
     Active Substance: GABAPENTIN
     Indication: NEURALGIA
     Dosage: 900 MG, 3X/DAY (1.5 TAB )
     Route: 048
  16. FAMOTIDINE. [Concomitant]
     Active Substance: FAMOTIDINE
     Indication: DYSPEPSIA
     Dosage: 40 MG, 1X/DAY (1 TAB BEDTIME )
  17. PROZAC [Concomitant]
     Active Substance: FLUOXETINE HYDROCHLORIDE
     Indication: ANXIETY
     Dosage: 40 MG, 1X/DAY
  18. LYRICA [Suspect]
     Active Substance: PREGABALIN
     Indication: NEURALGIA
     Dosage: 400 MG, 3X/DAY ((200MG ORAL CAPSULE, 2 TID))
     Route: 048
  19. LISINOPRIL. [Concomitant]
     Active Substance: LISINOPRIL
     Indication: HYPERTENSION
     Dosage: 10 MG, DAILY
     Route: 048
  20. LYRICA [Suspect]
     Active Substance: PREGABALIN
     Dosage: 200 MG, 2X/DAY

REACTIONS (5)
  - Prescribed overdose [Unknown]
  - Drug ineffective [Not Recovered/Not Resolved]
  - Hypoaesthesia [Unknown]
  - Gait disturbance [Unknown]
  - Pain in extremity [Unknown]
